FAERS Safety Report 20944984 (Version 3)
Quarter: 2022Q3

REPORT INFORMATION
  Report Type: Spontaneous
  Country: US (occurrence: US)
  Receive Date: 20220610
  Receipt Date: 20220808
  Transmission Date: 20221026
  Serious: No
  Sender: FDA-Public Use
  Company Number: US-PFIZER INC-202200808825

PATIENT
  Age: 70 Year
  Sex: Female
  Weight: 54.426 kg

DRUGS (1)
  1. PAXLOVID [Suspect]
     Active Substance: NIRMATRELVIR\RITONAVIR
     Indication: COVID-19 treatment
     Dosage: 300MG AND 100MG TWICE A DAY
     Dates: start: 20220606, end: 20220609

REACTIONS (7)
  - Dysgeusia [Recovered/Resolved]
  - Gastrointestinal pain [Unknown]
  - Oropharyngeal pain [Unknown]
  - Throat irritation [Unknown]
  - Oesophageal pain [Unknown]
  - Abdominal pain upper [Unknown]
  - Dyspepsia [Unknown]

NARRATIVE: CASE EVENT DATE: 20220606
